FAERS Safety Report 4883788-5 (Version None)
Quarter: 2006Q1

REPORT INFORMATION
  Report Type: 
  Country: None (occurrence: None)
  Receive Date: 20060113
  Receipt Date: 20051222
  Transmission Date: 20060701
  Serious: Yes (Hospitalization, Other)
  Sender: FDA-Public Use
  Company Number: US200512004043

PATIENT
  Age: 86 Year
  Sex: Female

DRUGS (1)
  1. EVISTA [Suspect]
     Indication: OSTEOPOROSIS
     Dates: start: 20030101

REACTIONS (7)
  - BASAL CELL CARCINOMA [None]
  - INTENTIONAL DRUG MISUSE [None]
  - MALAISE [None]
  - POOR QUALITY DRUG ADMINISTERED [None]
  - SEPSIS [None]
  - SURGICAL PROCEDURE REPEATED [None]
  - URINARY TRACT DISORDER [None]
